FAERS Safety Report 4340492-X (Version None)
Quarter: 2004Q2

REPORT INFORMATION
  Report Type: 
  Country: None (occurrence: None)
  Receive Date: 20040414
  Receipt Date: 20040402
  Transmission Date: 20050107
  Serious: Yes (Disabling)
  Sender: FDA-Public Use
  Company Number: K200400499

PATIENT
  Age: 80 Year
  Sex: Male

DRUGS (2)
  1. ALTACE [Suspect]
     Indication: HYPERTENSION
     Dosage: 5 MG, QD, ORAL
     Route: 048
     Dates: start: 20020809, end: 20040107
  2. GINGIUM (GINKGO BILOBA EXTRACT) [Concomitant]

REACTIONS (4)
  - COUGH [None]
  - DYSPHONIA [None]
  - SLEEP DISORDER [None]
  - VOCAL CORD INFLAMMATION [None]
